FAERS Safety Report 7022146-4 (Version None)
Quarter: 2010Q3

REPORT INFORMATION
  Report Type: 
  Country: None (occurrence: None)
  Receive Date: 20100928
  Receipt Date: 20100914
  Transmission Date: 20110219
  Serious: Yes (Hospitalization)
  Sender: FDA-Public Use
  Company Number: DSJ-2010-10239

PATIENT
  Age: 69 Year
  Sex: Male

DRUGS (3)
  1. BENICAR HCT [Suspect]
     Indication: HYPERTENSION
     Dosage: 40/25 MG (1 IN 1 D), PER ORAL
     Route: 048
     Dates: start: 20090701
  2. INSULIN (INSULIN) (INSULIN) [Concomitant]
  3. METFORMIN HCL [Concomitant]

REACTIONS (3)
  - CREATININE URINE INCREASED [None]
  - HYPERURICAEMIA [None]
  - SPINAL OPERATION [None]
